FAERS Safety Report 23967995 (Version 1)
Quarter: 2024Q2

REPORT INFORMATION
  Report Type: Spontaneous
  Country: US (occurrence: US)
  Receive Date: 20240612
  Receipt Date: 20240612
  Transmission Date: 20240716
  Serious: Yes (Hospitalization, Other)
  Sender: FDA-Public Use
  Company Number: US-FreseniusKabi-FK202409190

PATIENT
  Age: 37 Year
  Sex: Female

DRUGS (4)
  1. VANCOMYCIN [Suspect]
     Active Substance: VANCOMYCIN
     Indication: Abscess
  2. VANCOMYCIN [Suspect]
     Active Substance: VANCOMYCIN
     Indication: Infection
     Dosage: COMPLETED ANOTHER 6 WEEKS INPATIENT
     Route: 042
  3. GENTAMICIN [Concomitant]
     Active Substance: GENTAMICIN
     Indication: Abscess
     Route: 042
  4. CLINDAMYCIN [Concomitant]
     Active Substance: CLINDAMYCIN
     Indication: Abscess
     Route: 042

REACTIONS (1)
  - Acute kidney injury [Unknown]
